FAERS Safety Report 10866126 (Version 2)
Quarter: 2015Q3

REPORT INFORMATION
  Report Type: Spontaneous
  Country: US (occurrence: None)
  Receive Date: 20150219
  Receipt Date: 20150708
  Transmission Date: 20151125
  Serious: Yes (Hospitalization, Other)
  Sender: FDA-Public Use
  Company Number: RAP-0051-2015

PATIENT
  Age: 23 Year
  Sex: Female

DRUGS (1)
  1. PROCYSBI DELAYED-RELEASE [Suspect]
     Active Substance: CYSTEAMINE BITARTRATE
     Indication: CYSTINOSIS
     Dosage: 800 MG (400 MG, 1 IN 12 HR)
     Route: 048
     Dates: start: 201311, end: 201402

REACTIONS (3)
  - Dialysis [None]
  - Hospitalisation [None]
  - Renal transplant [None]

NARRATIVE: CASE EVENT DATE: 201506
